FAERS Safety Report 14573931 (Version 1)
Quarter: 2018Q1

REPORT INFORMATION
  Report Type: Spontaneous
  Country: CA (occurrence: CA)
  Receive Date: 20180226
  Receipt Date: 20180226
  Transmission Date: 20180509
  Serious: Yes (Death)
  Sender: FDA-Public Use
  Company Number: CA-PFIZER INC-2018074040

PATIENT
  Age: 71 Year
  Sex: Female

DRUGS (10)
  1. HYDROMORPHONE /00080902/ [Concomitant]
  2. INLYTA [Suspect]
     Active Substance: AXITINIB
     Dosage: 5 MG, 2X/DAY
     Route: 048
     Dates: start: 20170914
  3. SPORLAC DS [Concomitant]
  4. OXAZEPAM. [Concomitant]
     Active Substance: OXAZEPAM
  5. OMEGA 3 /01333901/ [Concomitant]
     Active Substance: FISH OIL\TOCOPHEROL
  6. ONDANSETRON [Concomitant]
     Active Substance: ONDANSETRON
  7. SENOKOT [Concomitant]
     Active Substance: SENNOSIDES
  8. CRANBERRY /01512301/ [Concomitant]
     Active Substance: CRANBERRY
  9. VITAMIN D /00107901/ [Concomitant]
     Active Substance: ERGOCALCIFEROL
     Dosage: UNK
  10. HYDROMORPHONE /00080902/ [Concomitant]

REACTIONS (1)
  - Death [Fatal]
